FAERS Safety Report 6441523-3 (Version None)
Quarter: 2009Q4

REPORT INFORMATION
  Report Type: 
  Country: None (occurrence: None)
  Receive Date: 20091110
  Receipt Date: 20090723
  Transmission Date: 20100525
  Serious: No
  Sender: FDA-Public Use
  Company Number: 1000006493

PATIENT
  Age: 63 Year
  Sex: Female

DRUGS (12)
  1. SAVELLA [Suspect]
     Indication: FIBROMYALGIA
     Dosage: SEE IMAGE
     Route: 048
     Dates: start: 20090517, end: 20090517
  2. SAVELLA [Suspect]
     Indication: FIBROMYALGIA
     Dosage: SEE IMAGE
     Route: 048
     Dates: start: 20090518, end: 20090519
  3. SAVELLA [Suspect]
     Indication: FIBROMYALGIA
     Dosage: SEE IMAGE
     Route: 048
     Dates: start: 20090520, end: 20090523
  4. SAVELLA [Suspect]
     Indication: FIBROMYALGIA
     Dosage: SEE IMAGE
     Route: 048
     Dates: start: 20090524, end: 20090704
  5. SAVELLA [Suspect]
     Indication: FIBROMYALGIA
     Dosage: SEE IMAGE
     Route: 048
     Dates: start: 20090705
  6. ULTRAM [Suspect]
     Indication: FIBROMYALGIA
     Dates: end: 20090716
  7. AMITRIPTYLINE [Concomitant]
  8. LORAZEPAM [Concomitant]
  9. LEVOTHROID [Concomitant]
  10. PROTONIX [Concomitant]
  11. VITAMINS [Concomitant]
  12. MORPHINE [Concomitant]

REACTIONS (5)
  - CHILLS [None]
  - FEELING ABNORMAL [None]
  - GAIT DISTURBANCE [None]
  - HEADACHE [None]
  - NAUSEA [None]
